FAERS Safety Report 8866734 (Version 1)
Quarter: 2012Q4

REPORT INFORMATION
  Report Type: 
  Country: US (occurrence: US)
  Receive Date: 20121025
  Receipt Date: 20121025
  Transmission Date: 20130627
  Serious: No
  Sender: FDA-Public Use
  Company Number: US-AMGEN-USASP2012012933

PATIENT
  Sex: Male
  Weight: 70.3 kg

DRUGS (14)
  1. ENBREL [Suspect]
     Indication: PRODUCT USED FOR UNKNOWN INDICATION
     Dosage: 50 mg, 2 times/wk
     Route: 058
  2. LORAZEPAM [Concomitant]
     Dosage: 1 mg, UNK
  3. DIGOXIN [Concomitant]
     Dosage: .25 mg, UNK
  4. HYDROCHLOROTHIAZIDE [Concomitant]
     Dosage: 25 mg, UNK
  5. VITAMIN E                          /00110501/ [Concomitant]
     Dosage: 1000 IU, UNK
  6. NEXIUM                             /01479302/ [Concomitant]
     Dosage: 20 mg, UNK
  7. POTASSIUM CHLORIDE HOSEI OTSUKA [Concomitant]
     Dosage: 10 mEq, UNK
  8. DILTIAZEM [Concomitant]
     Dosage: 180 mg, UNK
  9. ALLOPURINOL [Concomitant]
     Dosage: 100 mg, UNK
  10. WARFARIN [Concomitant]
     Dosage: 2.5 mg, UNK
  11. POTASSIUM [Concomitant]
     Dosage: 95 mg, UNK
  12. FISH OIL [Concomitant]
  13. VITAMIN D /00107901/ [Concomitant]
     Dosage: 1000 IU, UNK
  14. AMITIZA [Concomitant]
     Dosage: 8 mug, UNK

REACTIONS (3)
  - Blister [Unknown]
  - Dry skin [Not Recovered/Not Resolved]
  - Rash pruritic [Not Recovered/Not Resolved]
